FAERS Safety Report 11684356 (Version 1)
Quarter: 2015Q4

REPORT INFORMATION
  Report Type: Spontaneous
  Country: FR (occurrence: FR)
  Receive Date: 20151029
  Receipt Date: 20151029
  Transmission Date: 20160304
  Serious: Yes (Death, Life-Threatening, Hospitalization, Other)
  Sender: FDA-Public Use
  Company Number: FR-ASTRAZENECA-2015SF02970

PATIENT
  Age: 18970 Day
  Sex: Male

DRUGS (4)
  1. CORTICOSTEROID NOS [Concomitant]
     Active Substance: CORTICOSTEROID NOS
     Indication: IMMUNOSUPPRESSANT DRUG THERAPY
     Dates: start: 201506
  2. PROGRAF [Concomitant]
     Active Substance: TACROLIMUS\TACROLIMUS ANHYDROUS
     Indication: IMMUNOSUPPRESSANT DRUG THERAPY
     Dates: start: 201506
  3. PANTOPRAZOLE SODIUM. [Suspect]
     Active Substance: PANTOPRAZOLE SODIUM
     Route: 042
     Dates: start: 20150914, end: 20150920
  4. INEXIUM [Suspect]
     Active Substance: ESOMEPRAZOLE
     Route: 048
     Dates: start: 20150823, end: 20150914

REACTIONS (4)
  - Agranulocytosis [Unknown]
  - Septic shock [Unknown]
  - Chemical peritonitis [Unknown]
  - Death [Fatal]

NARRATIVE: CASE EVENT DATE: 20150914
